FAERS Safety Report 17054367 (Version 1)
Quarter: 2019Q4

REPORT INFORMATION
  Report Type: Report from Study
  Country: DE (occurrence: DE)
  Receive Date: 20191120
  Receipt Date: 20191120
  Transmission Date: 20200122
  Serious: Yes (Hospitalization)
  Sender: FDA-Public Use
  Company Number: DE-BEH-2017080544

PATIENT
  Age: 79 Year
  Sex: Female

DRUGS (6)
  1. CLEMASTIN [Concomitant]
     Active Substance: CLEMASTINE
     Indication: ANGIOEDEMA
     Dosage: 268 MG, TOT
     Route: 042
     Dates: start: 20140613, end: 20140613
  2. BERINERT [Suspect]
     Active Substance: HUMAN C1-ESTERASE INHIBITOR
     Indication: ANGIOEDEMA
     Dosage: UNK UNK, SINGLE
     Route: 042
     Dates: start: 20140613
  3. BERINERT [Suspect]
     Active Substance: HUMAN C1-ESTERASE INHIBITOR
     Indication: ANGIOEDEMA
     Dosage: UNK UNK, SINGLE
     Route: 042
     Dates: start: 20140613
  4. MIX 2 VIAL/SET, I.V. FLUID TRANSFER(BLINDED PLACEBO) [Suspect]
     Active Substance: INVESTIGATIONAL PRODUCT
     Indication: ANGIOEDEMA
     Dosage: UNK UNK, SINGLE
     Route: 042
     Dates: start: 20140613
  5. ALCOHOL PAD/PAD, ALCOHOL, DEVICE DISINFECTANT(BLINDED PLACEBO) [Suspect]
     Active Substance: INVESTIGATIONAL PRODUCT
     Indication: ANGIOEDEMA
     Dosage: UNK UNK, SINGLE
     Route: 042
     Dates: start: 20140613
  6. CORTISONE [Concomitant]
     Active Substance: CORTISONE
     Indication: ANGIOEDEMA
     Dosage: 500 MG, TOT
     Route: 042
     Dates: start: 20140613, end: 20140613

REACTIONS (2)
  - Contusion [Recovered/Resolved]
  - Fall [Recovered/Resolved]

NARRATIVE: CASE EVENT DATE: 20140714
